FAERS Safety Report 19153220 (Version 7)
Quarter: 2025Q1

REPORT INFORMATION
  Report Type: Spontaneous
  Country: CA (occurrence: CA)
  Receive Date: 20210419
  Receipt Date: 20250325
  Transmission Date: 20250409
  Serious: Yes (Death)
  Sender: ROCHE
  Company Number: CA-ROCHE-2810364

PATIENT
  Age: 74 Year
  Sex: Female
  Weight: 50.0 kg

DRUGS (26)
  1. RITUXIMAB [Suspect]
     Active Substance: RITUXIMAB
     Indication: Neuromyelitis optica spectrum disorder
     Route: 042
  2. RITUXIMAB [Suspect]
     Active Substance: RITUXIMAB
     Indication: Multiple sclerosis
     Route: 042
  3. RITUXIMAB [Suspect]
     Active Substance: RITUXIMAB
     Dosage: 808 DAYS
     Route: 042
  4. RITUXIMAB [Suspect]
     Active Substance: RITUXIMAB
     Route: 042
  5. RITUXIMAB [Suspect]
     Active Substance: RITUXIMAB
     Route: 042
  6. RITUXIMAB [Suspect]
     Active Substance: RITUXIMAB
     Dosage: 1095 DAYS
     Route: 042
  7. RITUXIMAB [Suspect]
     Active Substance: RITUXIMAB
     Route: 042
  8. RITUXIMAB [Suspect]
     Active Substance: RITUXIMAB
     Dosage: 1095 DAYS
     Route: 042
  9. RITUXIMAB [Suspect]
     Active Substance: RITUXIMAB
     Dosage: 1095 DAYS
     Route: 042
  10. RITUXIMAB [Suspect]
     Active Substance: RITUXIMAB
     Dosage: 1095 DAYS
     Route: 042
  11. RITUXIMAB [Suspect]
     Active Substance: RITUXIMAB
     Route: 042
  12. RITUXIMAB [Suspect]
     Active Substance: RITUXIMAB
     Dosage: 1095 DAYS
     Route: 042
  13. AMLODIPINE BESYLATE [Suspect]
     Active Substance: AMLODIPINE BESYLATE
     Indication: Blood pressure increased
     Route: 065
  14. AMLODIPINE BESYLATE [Suspect]
     Active Substance: AMLODIPINE BESYLATE
     Route: 065
  15. CYCLOSPORINE [Suspect]
     Active Substance: CYCLOSPORINE
     Indication: Haemoglobin decreased
     Route: 065
  16. CYCLOSPORINE [Suspect]
     Active Substance: CYCLOSPORINE
     Route: 065
  17. PREDNISONE [Suspect]
     Active Substance: PREDNISONE
     Indication: Product used for unknown indication
     Route: 065
  18. PREDNISONE [Suspect]
     Active Substance: PREDNISONE
     Route: 065
  19. RITUXIMAB [Concomitant]
     Active Substance: RITUXIMAB
     Route: 065
  20. RANITIDINE [Concomitant]
     Active Substance: RANITIDINE
  21. SYNTHROID [Concomitant]
     Active Substance: LEVOTHYROXINE SODIUM
  22. TYLENOL [Concomitant]
     Active Substance: ACETAMINOPHEN
  23. BILBERRY (VACCINIUMMYRTILLUS) [Concomitant]
  24. ORACORT [Concomitant]
  25. ACETAMINOPHEN [Concomitant]
     Active Substance: ACETAMINOPHEN
     Route: 048
  26. ORACORT [Concomitant]
     Route: 065

REACTIONS (37)
  - Aphthous ulcer [Fatal]
  - Balance disorder [Fatal]
  - Blood iron increased [Fatal]
  - Blood pressure increased [Fatal]
  - Blood pressure systolic abnormal [Fatal]
  - Blood pressure systolic increased [Fatal]
  - Chest pain [Fatal]
  - Constipation [Fatal]
  - Dyschromatopsia [Fatal]
  - Eye pain [Fatal]
  - Fatigue [Fatal]
  - Haemoglobin decreased [Fatal]
  - Headache [Fatal]
  - Heart rate increased [Fatal]
  - Joint swelling [Fatal]
  - Metamorphopsia [Fatal]
  - Migraine [Fatal]
  - Migraine with aura [Fatal]
  - Nerve compression [Fatal]
  - Optic neuritis [Fatal]
  - Pain [Fatal]
  - Pigmentation disorder [Fatal]
  - Pruritus [Fatal]
  - Rash [Fatal]
  - Vision blurred [Fatal]
  - Weight increased [Fatal]
  - Vulvovaginal pruritus [Fatal]
  - Skin mass [Fatal]
  - Abdominal distension [Fatal]
  - Abdominal pain upper [Fatal]
  - Allergy to chemicals [Fatal]
  - Polymers allergy [Fatal]
  - Eastern Cooperative Oncology Group performance status abnormal [Fatal]
  - Off label use [Fatal]
  - Blood pressure fluctuation [Fatal]
  - Haemorrhoids [Fatal]
  - Weight decreased [Fatal]
